FAERS Safety Report 8927372 (Version 5)
Quarter: 2014Q3

REPORT INFORMATION
  Report Type: Report from Study
  Country: JP (occurrence: JP)
  Receive Date: 20121127
  Receipt Date: 20140724
  Transmission Date: 20150326
  Serious: Yes (Other)
  Sender: FDA-Public Use
  Company Number: JP-VERTEX PHARMACEUTICAL INC.-AE-2012-011972

PATIENT
  Age: 43 Year
  Sex: Male

DRUGS (11)
  1. PEGINTRON [Suspect]
     Active Substance: PEGINTERFERON ALFA-2B
     Dosage: 1.0 ?G/KG, QW
     Route: 058
     Dates: start: 20120919, end: 20120919
  2. PEGINTRON [Suspect]
     Active Substance: PEGINTERFERON ALFA-2B
     Dosage: 1.25 ?G/KG, QW
     Route: 058
     Dates: start: 20120926, end: 20121024
  3. RIBAVIRIN. [Suspect]
     Active Substance: RIBAVIRIN
     Dosage: 400 MG, QD
     Route: 048
     Dates: start: 20120912
  4. TELAPREVIR [Suspect]
     Active Substance: TELAPREVIR
     Indication: CHRONIC HEPATITIS C
     Dosage: 2250 MG, QD
     Route: 048
     Dates: start: 20120801, end: 20120911
  5. PEGINTRON [Suspect]
     Active Substance: PEGINTERFERON ALFA-2B
     Indication: CHRONIC HEPATITIS C
     Dosage: 1.5 ?G/KG, QW
     Route: 058
     Dates: start: 20120801, end: 20120828
  6. PEGINTRON [Suspect]
     Active Substance: PEGINTERFERON ALFA-2B
     Dosage: 1.5 ?G/KG, QW
     Route: 058
     Dates: start: 20121031, end: 20121114
  7. RIBAVIRIN. [Suspect]
     Active Substance: RIBAVIRIN
     Indication: CHRONIC HEPATITIS C
     Dosage: 800 MG, QD
     Route: 048
     Dates: start: 20120801, end: 20120828
  8. RIBAVIRIN. [Suspect]
     Active Substance: RIBAVIRIN
     Dosage: 600 MG, QD
     Route: 048
     Dates: start: 20120829, end: 20120911
  9. PEGINTRON [Suspect]
     Active Substance: PEGINTERFERON ALFA-2B
     Dosage: 0.75 ?G/KG, QW
     Route: 058
     Dates: start: 20121121, end: 20130109
  10. TELAPREVIR [Suspect]
     Active Substance: TELAPREVIR
     Dosage: 1500 MG, QD
     Route: 048
     Dates: start: 20120912, end: 20121023
  11. PEGINTRON [Suspect]
     Active Substance: PEGINTERFERON ALFA-2B
     Dosage: 0.75 ?G/KG, QW
     Route: 058
     Dates: start: 20120829, end: 20120912

REACTIONS (2)
  - Neutrophil count decreased [Recovered/Resolved]
  - Neutrophil count decreased [Recovered/Resolved]

NARRATIVE: CASE EVENT DATE: 20120829
